FAERS Safety Report 11544155 (Version 1)
Quarter: 2015Q3

REPORT INFORMATION
  Report Type: Spontaneous
  Country: FR (occurrence: FR)
  Receive Date: 20150924
  Receipt Date: 20150924
  Transmission Date: 20151125
  Serious: Yes (Hospitalization, Other)
  Sender: FDA-Public Use
  Company Number: FR-ASTRAZENECA-2015SE90554

PATIENT
  Age: 3636 Week
  Sex: Male

DRUGS (2)
  1. INEXIUM [Suspect]
     Active Substance: ESOMEPRAZOLE
     Route: 048
     Dates: start: 20150406, end: 20150424
  2. VANCOMYCIN [Suspect]
     Active Substance: VANCOMYCIN
     Dosage: SANDOZ
     Route: 042
     Dates: start: 20150406, end: 20150423

REACTIONS (2)
  - Pyelonephritis [Unknown]
  - Drug reaction with eosinophilia and systemic symptoms [Unknown]

NARRATIVE: CASE EVENT DATE: 20150422
